FAERS Safety Report 5115722-7 (Version None)
Quarter: 2006Q3

REPORT INFORMATION
  Report Type: 
  Country: None (occurrence: None)
  Receive Date: 20060927
  Receipt Date: 20060614
  Transmission Date: 20061208
  Serious: No
  Sender: FDA-Public Use
  Company Number: US-GLAXOSMITHKLINE-A0608981A

PATIENT
  Age: 47 Year
  Sex: Female

DRUGS (6)
  1. LAMOTRIGINE [Suspect]
     Indication: DEPRESSION
     Dosage: 5MG TWICE PER DAY
     Route: 048
     Dates: start: 20060501
  2. CELEXA [Concomitant]
  3. EVOXAC [Concomitant]
  4. HYDROCORTISONE [Concomitant]
  5. HUMIBID [Concomitant]
  6. ESTROGEN REPLACEMENT [Concomitant]

REACTIONS (1)
  - DEPRESSION [None]
